FAERS Safety Report 19840164 (Version 7)
Quarter: 2022Q3

REPORT INFORMATION
  Report Type: Spontaneous
  Country: JP (occurrence: JP)
  Receive Date: 20210916
  Receipt Date: 20220714
  Transmission Date: 20221027
  Serious: Yes (Death, Hospitalization, Other)
  Sender: FDA-Public Use
  Company Number: JP-GLAXOSMITHKLINE-JP2021JPN135698

PATIENT

DRUGS (7)
  1. TRELEGY ELLIPTA [Suspect]
     Active Substance: FLUTICASONE FUROATE\UMECLIDINIUM BROMIDE\VILANTEROL TRIFENATATE
     Indication: Chronic obstructive pulmonary disease
     Dosage: 100 ?G, QD
     Dates: end: 20210618
  2. TRELEGY ELLIPTA [Suspect]
     Active Substance: FLUTICASONE FUROATE\UMECLIDINIUM BROMIDE\VILANTEROL TRIFENATATE
     Indication: Asthma
  3. MUCOSOLVAN L TABLET [Concomitant]
     Dosage: 1 DF, FOR A LONG TERM SINCE BEFORE
  4. ASPIRIN\LANSOPRAZOLE [Concomitant]
     Active Substance: ASPIRIN\LANSOPRAZOLE
     Dosage: 1 DF
     Route: 048
     Dates: start: 20210426
  5. VERAPAMIL HYDROCHLORIDE [Concomitant]
     Active Substance: VERAPAMIL HYDROCHLORIDE
     Indication: Tachycardia
     Dosage: 3 DF
     Route: 048
     Dates: start: 20210426
  6. VOGLIBOSE [Concomitant]
     Active Substance: VOGLIBOSE
     Dosage: 0.6/DAY
     Route: 048
     Dates: start: 20210426
  7. SILODOSIN [Concomitant]
     Active Substance: SILODOSIN
     Dosage: 4 MG
     Dates: start: 20210226

REACTIONS (7)
  - Pneumonia [Fatal]
  - Pseudomonas infection [Fatal]
  - Pneumonia bacterial [Unknown]
  - Pneumonia pseudomonal [Recovering/Resolving]
  - Pyrexia [Recovering/Resolving]
  - Chronic obstructive pulmonary disease [Recovering/Resolving]
  - Product use issue [Unknown]

NARRATIVE: CASE EVENT DATE: 20210309
